FAERS Safety Report 5731807-6 (Version None)
Quarter: 2008Q2

REPORT INFORMATION
  Report Type: 
  Country: None (occurrence: None)
  Receive Date: 20080508
  Receipt Date: 20080428
  Transmission Date: 20081010
  Serious: Yes (Hospitalization, Congenital Anomaly)
  Sender: FDA-Public Use
  Company Number: A0662262A

PATIENT
  Sex: Female
  Weight: 3.2 kg

DRUGS (5)
  1. PAXIL [Suspect]
     Indication: DEPRESSION
     Dosage: 20MG PER DAY
     Dates: start: 19960101, end: 20031104
  2. PAROXETINE HCL [Suspect]
     Indication: DEPRESSION
     Dosage: 20MG PER DAY
     Dates: start: 20031104, end: 20060701
  3. VITAMIN TAB [Concomitant]
     Dates: start: 20050301
  4. AMBIEN [Concomitant]
  5. ASPIRIN [Concomitant]

REACTIONS (21)
  - ANOMALOUS PULMONARY VENOUS CONNECTION [None]
  - ANXIETY [None]
  - COARCTATION OF THE AORTA [None]
  - CONGENITAL AORTIC ATRESIA [None]
  - CONVULSION [None]
  - DEVELOPMENTAL DELAY [None]
  - DRUG EXPOSURE DURING PREGNANCY [None]
  - FAILURE TO THRIVE [None]
  - FOETAL CARDIAC DISORDER [None]
  - HEART DISEASE CONGENITAL [None]
  - HIP DYSPLASIA [None]
  - HYPOPLASTIC LEFT HEART SYNDROME [None]
  - HYPOXIA [None]
  - MITRAL VALVE ATRESIA [None]
  - PAIN [None]
  - PATENT DUCTUS ARTERIOSUS [None]
  - PERSISTENT FOETAL CIRCULATION [None]
  - PLEURAL EFFUSION [None]
  - PULMONARY OEDEMA [None]
  - SPEECH DISORDER DEVELOPMENTAL [None]
  - TRICUSPID VALVE INCOMPETENCE [None]
